FAERS Safety Report 23604951 (Version 2)
Quarter: 2024Q2

REPORT INFORMATION
  Report Type: Spontaneous
  Country: US (occurrence: US)
  Receive Date: 20240307
  Receipt Date: 20240612
  Transmission Date: 20240716
  Serious: Yes (Other)
  Sender: FDA-Public Use
  Company Number: US-IMMUNOGEN, INC.-US-IMGN-24-00161

PATIENT
  Age: 73 Year
  Sex: Female

DRUGS (2)
  1. ELAHERE [Suspect]
     Active Substance: MIRVETUXIMAB SORAVTANSINE-GYNX
     Indication: Product used for unknown indication
     Dosage: UNK, CYCLIC, 3 CYCLES
     Route: 042
     Dates: start: 20231024, end: 20231205
  2. ELAHERE [Suspect]
     Active Substance: MIRVETUXIMAB SORAVTANSINE-GYNX
     Dosage: 5 MILLIGRAM/KILOGRAM, CYCLIC
     Route: 042
     Dates: start: 20231205, end: 20231205

REACTIONS (3)
  - Punctate keratitis [Unknown]
  - Peripheral sensory neuropathy [Recovered/Resolved]
  - Panic attack [Recovered/Resolved]
